FAERS Safety Report 21720970 (Version 1)
Quarter: 2022Q4

REPORT INFORMATION
  Report Type: Spontaneous
  Country: US (occurrence: None)
  Receive Date: 20221212
  Receipt Date: 20221212
  Transmission Date: 20230112
  Serious: Yes (Life-Threatening, Hospitalization)
  Sender: FDA-Public Use
  Company Number: None

PATIENT
  Age: 70 Year
  Sex: Male

DRUGS (2)
  1. LISINOPRIL [Suspect]
     Active Substance: LISINOPRIL
     Indication: Hypertension
     Dosage: FREQUENCY : 3 TIMES A DAY;?
     Route: 048
     Dates: start: 20061024, end: 20160411
  2. LISINOPRIL [Suspect]
     Active Substance: LISINOPRIL
     Indication: Diabetes mellitus

REACTIONS (4)
  - Angioedema [None]
  - Hypophagia [None]
  - Dysarthria [None]
  - Swollen tongue [None]

NARRATIVE: CASE EVENT DATE: 20160411
